FAERS Safety Report 7229306-8 (Version None)
Quarter: 2011Q1

REPORT INFORMATION
  Report Type: 
  Country: None (occurrence: None)
  Receive Date: 20110117
  Receipt Date: 20110106
  Transmission Date: 20110831
  Serious: Yes (Hospitalization)
  Sender: FDA-Public Use
  Company Number: PT-JNJFOC-20100402683

PATIENT
  Sex: Female
  Weight: 40 kg

DRUGS (13)
  1. PANTOPRAZOLE [Concomitant]
     Indication: GASTROINTESTINAL DISORDER THERAPY
  2. PARACETAMOL [Suspect]
     Indication: PAIN
     Route: 048
  3. SODIUM CITRATE [Concomitant]
     Indication: CONSTIPATION
  4. ACETYLSALICYLIC ACID [Concomitant]
     Indication: THROMBOSIS PROPHYLAXIS
  5. METOCLOPRAMIDE [Concomitant]
     Indication: PROPHYLAXIS OF NAUSEA AND VOMITING
  6. ALLOPURINOL [Suspect]
     Indication: HYPERURICAEMIA
     Dosage: 1 PER DAY
     Route: 048
  7. DEXAMETHASONE [Suspect]
     Indication: MULTIPLE MYELOMA
     Route: 065
  8. LENALIDOMIDE [Suspect]
     Indication: MULTIPLE MYELOMA
     Dosage: 1 PER DAY
     Route: 048
  9. PARACETAMOL [Suspect]
     Route: 042
  10. CAFFEINE W/CODEINE PHOSPHATE/PARACETAMOL [Concomitant]
     Indication: BACK PAIN
  11. TRAMAL 100 [Suspect]
     Indication: BACK PAIN
     Dosage: 3 TIMES A DAY
     Route: 042
  12. MAGNESIUM HYDROXIDE [Concomitant]
     Route: 065
  13. ONDANSETRON [Concomitant]
     Indication: VOMITING
     Route: 065

REACTIONS (5)
  - VOMITING [None]
  - HEPATOTOXICITY [None]
  - RENAL FAILURE ACUTE [None]
  - PAIN [None]
  - ALANINE AMINOTRANSFERASE INCREASED [None]
